FAERS Safety Report 16965326 (Version 1)
Quarter: 2019Q4

REPORT INFORMATION
  Report Type: Spontaneous
  Country: CA (occurrence: CA)
  Receive Date: 20191028
  Receipt Date: 20191028
  Transmission Date: 20200122
  Serious: Yes (Hospitalization, Other)
  Sender: FDA-Public Use
  Company Number: CA-PFIZER INC-2019457897

PATIENT
  Age: 57 Year
  Sex: Male
  Weight: 59 kg

DRUGS (2)
  1. CELEBREX [Suspect]
     Active Substance: CELECOXIB
     Indication: ARTHRITIS
  2. CELEBREX [Suspect]
     Active Substance: CELECOXIB
     Indication: BONE DISORDER
     Dosage: 400 MG, 2X/DAY
     Route: 048

REACTIONS (8)
  - Pain [Recovering/Resolving]
  - Drug ineffective [Unknown]
  - Abdominal pain upper [Recovering/Resolving]
  - Dysarthria [Recovering/Resolving]
  - Muscle spasms [Recovering/Resolving]
  - Dysphemia [Recovering/Resolving]
  - Tremor [Recovering/Resolving]
  - Off label use [Unknown]
